FAERS Safety Report 7172994 (Version 2)
Quarter: 2014Q2

REPORT INFORMATION
  Report Type: Spontaneous
  Country: FR (occurrence: None)
  Receive Date: 20091028
  Receipt Date: 20140415
  Transmission Date: 20141212
  Serious: Yes (Hospitalization, Other)
  Sender: FDA-Public Use
  Company Number: AUR-APL-2009-00894

PATIENT
  Age: 3 Month
  Sex: Male

DRUGS (2)
  1. HYDROCHLOROTHIAZIDE [Suspect]
     Indication: PRODUCT USED FOR UNKNOWN INDICATION
     Dosage: 2MG/KG, DAILY
  2. INDOMETHACIN [Suspect]
     Indication: PRODUCT USED FOR UNKNOWN INDICATION
     Dosage: 2MG/KG, DAILY

REACTIONS (7)
  - Water intoxication [None]
  - Fluid overload [None]
  - Oedema [None]
  - Hyponatraemia [None]
  - Status epilepticus [None]
  - No therapeutic response [None]
  - Somnolence [None]
